FAERS Safety Report 9226834 (Version 1)
Quarter: 2013Q2

REPORT INFORMATION
  Report Type: Spontaneous
  Country: IT (occurrence: IT)
  Receive Date: 20130412
  Receipt Date: 20130412
  Transmission Date: 20140414
  Serious: Yes (Other)
  Sender: FDA-Public Use
  Company Number: IT-JNJFOC-20130404514

PATIENT
  Age: 55 Year
  Sex: Female
  Weight: 75 kg

DRUGS (2)
  1. DOXORUBICIN HYDROCHLORIDE (CAELYX) [Suspect]
     Indication: OVARIAN CANCER
     Route: 042
     Dates: start: 20120814, end: 20121211
  2. DOXORUBICIN HYDROCHLORIDE (CAELYX) [Suspect]
     Indication: OVARIAN CANCER
     Dosage: REDUCED DOSE
     Route: 042

REACTIONS (1)
  - Skin toxicity [Recovered/Resolved]
